FAERS Safety Report 6597615-1 (Version None)
Quarter: 2010Q1

REPORT INFORMATION
  Report Type: 
  Country: None (occurrence: None)
  Receive Date: 20100223
  Receipt Date: 20100215
  Transmission Date: 20100710
  Serious: Yes (Hospitalization)
  Sender: FDA-Public Use
  Company Number: US-MYLANLABS-2010S1002306

PATIENT
  Age: 64 Year
  Sex: Female

DRUGS (4)
  1. NITROFURANTOIN [Suspect]
     Indication: KIDNEY INFECTION
     Route: 048
     Dates: start: 20091101, end: 20091104
  2. ROPINIROLE [Concomitant]
     Indication: RESTLESS LEGS SYNDROME
     Route: 048
  3. PROZAC [Concomitant]
     Indication: DEPRESSION
     Route: 048
  4. GABAPENTIN [Concomitant]
     Indication: RESTLESS LEGS SYNDROME
     Route: 048

REACTIONS (8)
  - CHEST PAIN [None]
  - CHILLS [None]
  - DYSPNOEA [None]
  - HYPOTENSION [None]
  - LOSS OF CONSCIOUSNESS [None]
  - LUNG INFILTRATION [None]
  - PRURITUS [None]
  - PYREXIA [None]
